FAERS Safety Report 6083358-X (Version None)
Quarter: 2009Q1

REPORT INFORMATION
  Report Type: 
  Country: None (occurrence: None)
  Receive Date: 20090213
  Receipt Date: 20090213
  Transmission Date: 20090719
  Serious: Yes (Life-Threatening)
  Sender: FDA-Public Use
  Company Number: None

PATIENT
  Age: 64 Year
  Sex: Male
  Weight: 79.8331 kg

DRUGS (2)
  1. CIPRO [Suspect]
     Indication: BIOPSY PROSTATE
     Dosage: 1
     Dates: start: 20090212, end: 20090212
  2. LEVAQUIN [Suspect]
     Indication: PROSTATE INFECTION
     Dates: start: 20071012, end: 20071012

REACTIONS (13)
  - CHEST PAIN [None]
  - DYSPNOEA [None]
  - ERYTHEMA [None]
  - FEELING HOT [None]
  - HYPERTHERMIA [None]
  - MEMORY IMPAIRMENT [None]
  - NASAL CONGESTION [None]
  - OCULAR HYPERAEMIA [None]
  - OEDEMA PERIPHERAL [None]
  - PRURITUS [None]
  - THINKING ABNORMAL [None]
  - TREMOR [None]
  - URTICARIA [None]
